FAERS Safety Report 5321946-6 (Version None)
Quarter: 2007Q2

REPORT INFORMATION
  Report Type: 
  Country: None (occurrence: None)
  Receive Date: 20070511
  Receipt Date: 20070501
  Transmission Date: 20071010
  Serious: Yes (Other)
  Sender: FDA-Public Use
  Company Number: PHFR2007GB01501

PATIENT
  Age: 55 Year
  Sex: Female
  Weight: 82 kg

DRUGS (3)
  1. LETROZOLE [Suspect]
     Indication: BREAST CANCER
     Dosage: 2.5MG DAILY
     Route: 048
     Dates: start: 20051223
  2. CLONIDINE [Concomitant]
     Dosage: 25MG DAILY
     Route: 048
     Dates: start: 20060301
  3. SIMVASTATIN [Concomitant]
     Indication: BLOOD CHOLESTEROL INCREASED
     Dosage: 20MG DAILY
     Route: 048
     Dates: start: 20061101

REACTIONS (2)
  - PHOTOSENSITIVITY REACTION [None]
  - URTICARIA [None]
